FAERS Safety Report 21673506 (Version 1)
Quarter: 2022Q4

REPORT INFORMATION
  Report Type: Spontaneous
  Country: US (occurrence: US)
  Receive Date: 20221202
  Receipt Date: 20221202
  Transmission Date: 20230112
  Serious: Yes (Hospitalization)
  Sender: FDA-Public Use
  Company Number: US-MYLANLABS-2022M1134254

PATIENT
  Age: 42 Year
  Sex: Male

DRUGS (4)
  1. MOXIFLOXACIN [Suspect]
     Active Substance: MOXIFLOXACIN
     Indication: Eye disorder prophylaxis
     Dosage: 0.2 MILLILITER (UNDILUTED PRESERVATIVE FREE INTRACAMERAL MOXIFLOXACIN)
  2. MOXIFLOXACIN [Suspect]
     Active Substance: MOXIFLOXACIN
     Indication: Eye disorder prophylaxis
     Dosage: 0.1 MILLILITER INTRASTROMAL  (UNDILUTED PRESERVATIVE FREE INTRASTROMAL MOXIFLOXACIN)
     Route: 065
  3. SODIUM CHLORIDE [Suspect]
     Active Substance: SODIUM CHLORIDE
     Indication: Corneal oedema
     Dosage: UNK (DROPS)
     Route: 065
  4. PREDNISOLONE ACETATE [Suspect]
     Active Substance: PREDNISOLONE ACETATE
     Indication: Corneal oedema
     Dosage: UNK
     Route: 065

REACTIONS (5)
  - Corneal decompensation [Recovering/Resolving]
  - Toxic anterior segment syndrome [Recovering/Resolving]
  - Corneal oedema [Recovering/Resolving]
  - Off label use [Unknown]
  - Drug ineffective [Unknown]
